FAERS Safety Report 4553991-2 (Version None)
Quarter: 2005Q1

REPORT INFORMATION
  Report Type: 
  Country: None (occurrence: None)
  Receive Date: 20050118
  Receipt Date: 20050107
  Transmission Date: 20050727
  Serious: Yes (Hospitalization)
  Sender: FDA-Public Use
  Company Number: ES-ROCHE-391725

PATIENT
  Age: 80 Year
  Sex: Female

DRUGS (5)
  1. NICARDIPINE HCL [Suspect]
     Indication: DRUG USE FOR UNKNOWN INDICATION
     Route: 048
     Dates: end: 20040304
  2. RENITEC [Suspect]
     Indication: DRUG USE FOR UNKNOWN INDICATION
     Route: 065
     Dates: end: 20040304
  3. CLOPIDOGREL [Concomitant]
     Dosage: DRUG NAME STATED AS CLOPIDOGREL SULFATE.
  4. RABEPRAZOLE SODIUM [Concomitant]
  5. BUFLOMEDIL HYDROCHLORIDE [Concomitant]
     Dates: end: 20040304

REACTIONS (5)
  - COLD SWEAT [None]
  - DISCOMFORT [None]
  - DIZZINESS [None]
  - HYPOTENSION [None]
  - PALLOR [None]
